FAERS Safety Report 5201227-1 (Version None)
Quarter: 2007Q1

REPORT INFORMATION
  Report Type: 
  Country: None (occurrence: None)
  Receive Date: 20070104
  Receipt Date: 20061226
  Transmission Date: 20070707
  Serious: Yes (Other)
  Sender: FDA-Public Use
  Company Number: 2006301051

PATIENT
  Sex: Male
  Weight: 102.1 kg

DRUGS (3)
  1. ROGAINE [Suspect]
     Indication: ALOPECIA
     Dosage: 1ML TWICE A DAY (1 ML, 2 IN 1 D), TOPICAL
     Route: 061
     Dates: start: 19910101
  2. DOXAZOSIN MESYLATE [Concomitant]
  3. INSULIN [Concomitant]

REACTIONS (1)
  - MALIGNANT MELANOMA [None]
